FAERS Safety Report 11859293 (Version 1)
Quarter: 2015Q4

REPORT INFORMATION
  Report Type: Report from Study
  Country: US (occurrence: US)
  Receive Date: 20151221
  Receipt Date: 20151221
  Transmission Date: 20160305
  Serious: Yes (Hospitalization, Other)
  Sender: FDA-Public Use
  Company Number: US-BIOGEN-2012BI010450

PATIENT
  Age: 59 Year
  Sex: Female

DRUGS (6)
  1. AVONEX [Suspect]
     Active Substance: INTERFERON BETA-1A
     Route: 030
     Dates: start: 20120426
  2. AVONEX [Suspect]
     Active Substance: INTERFERON BETA-1A
     Route: 030
     Dates: start: 20030110, end: 20040401
  3. TYLENOL [Concomitant]
     Active Substance: ACETAMINOPHEN
     Indication: THERAPEUTIC PROCEDURE
  4. AVONEX [Suspect]
     Active Substance: INTERFERON BETA-1A
     Route: 030
     Dates: start: 20120912, end: 20150803
  5. IBUPROFEN. [Concomitant]
     Active Substance: IBUPROFEN
     Indication: THERAPEUTIC PROCEDURE
  6. AVONEX [Suspect]
     Active Substance: INTERFERON BETA-1A
     Indication: MULTIPLE SCLEROSIS
     Route: 030
     Dates: start: 20050101

REACTIONS (9)
  - Concussion [Recovered/Resolved]
  - Spinal fracture [Recovered/Resolved]
  - Road traffic accident [Recovered/Resolved]
  - Adenocarcinoma [Not Recovered/Not Resolved]
  - Anal squamous cell carcinoma [Recovered/Resolved]
  - Thrombosis [Recovered/Resolved]
  - Hearing impaired [Recovered/Resolved]
  - Foot fracture [Unknown]
  - Headache [Not Recovered/Not Resolved]

NARRATIVE: CASE EVENT DATE: 2011
